FAERS Safety Report 18311926 (Version 2)
Quarter: 2020Q4

REPORT INFORMATION
  Report Type: Spontaneous
  Country: DE (occurrence: DE)
  Receive Date: 20200925
  Receipt Date: 20201215
  Transmission Date: 20210113
  Serious: Yes (Hospitalization, Other)
  Sender: FDA-Public Use
  Company Number: DE-ACCORD-202554

PATIENT
  Age: 15 Year
  Sex: Female
  Weight: 39 kg

DRUGS (6)
  1. LEVOTHYROXINE. [Suspect]
     Active Substance: LEVOTHYROXINE
     Dosage: STRENGTH: 150 UG
     Route: 048
     Dates: start: 20200619, end: 20200619
  2. ATORVASTATIN/ATORVASTATIN CALCIUM [Suspect]
     Active Substance: ATORVASTATIN CALCIUM
     Dosage: STRENGTH: 40 MG
     Route: 048
     Dates: start: 20200619, end: 20200619
  3. ZONISAMIDE. [Suspect]
     Active Substance: ZONISAMIDE
     Dosage: STRENGTH: 100 MG
     Route: 048
     Dates: start: 20200619, end: 20200619
  4. RAMIPRIL. [Suspect]
     Active Substance: RAMIPRIL
     Dosage: STRENGTH: 2.5 MG
     Route: 048
     Dates: start: 20200619, end: 20200619
  5. TORASEMIDE [Suspect]
     Active Substance: TORSEMIDE
     Dosage: STRENGTH: 10 MG
     Route: 048
     Dates: start: 20200619, end: 20200619
  6. GUANFACINE/GUANFACINE HYDROCHLORIDE [Suspect]
     Active Substance: GUANFACINE HYDROCHLORIDE
     Dosage: STRENGTH: 2 MG
     Route: 048
     Dates: start: 20200619, end: 20200619

REACTIONS (11)
  - Lactic acidosis [Unknown]
  - Toxicity to various agents [Unknown]
  - Hypothermia [Unknown]
  - General physical health deterioration [Unknown]
  - Intentional overdose [Unknown]
  - Hypotension [Unknown]
  - Depressed level of consciousness [Unknown]
  - Suicidal ideation [Unknown]
  - Nausea [Unknown]
  - Arrhythmia [Unknown]
  - Vomiting [Unknown]

NARRATIVE: CASE EVENT DATE: 20200619
